FAERS Safety Report 8827577 (Version 1)
Quarter: 2012Q4

REPORT INFORMATION
  Report Type: 
  Country: US (occurrence: US)
  Receive Date: 20121008
  Receipt Date: 20121008
  Transmission Date: 20130627
  Serious: No
  Sender: FDA-Public Use
  Company Number: US-BAYER-2012-104424

PATIENT
  Age: 35 Year
  Sex: Male
  Weight: 86.17 kg

DRUGS (1)
  1. BETASERON [Suspect]
     Dosage: 0.25 mg (1mL) every other day
     Route: 058

REACTIONS (2)
  - Erectile dysfunction [Unknown]
  - Pyrexia [Unknown]
